FAERS Safety Report 16720444 (Version 2)
Quarter: 2019Q4

REPORT INFORMATION
  Report Type: Report from Study
  Country: MX (occurrence: US)
  Receive Date: 20190820
  Receipt Date: 20191003
  Transmission Date: 20200122
  Serious: Yes (Hospitalization)
  Sender: FDA-Public Use
  Company Number: US-BAYER-2019-153465

PATIENT
  Age: 74 Year
  Sex: Female

DRUGS (3)
  1. OPSUMIT [Concomitant]
     Active Substance: MACITENTAN
  2. ADEMPAS [Suspect]
     Active Substance: RIOCIGUAT
     Indication: PULMONARY ARTERIAL HYPERTENSION
     Dosage: UNK
     Route: 048
     Dates: start: 20180501
  3. ADEMPAS [Suspect]
     Active Substance: RIOCIGUAT
     Indication: PULMONARY ARTERIAL HYPERTENSION
     Dosage: 2.5 MG, TID
     Route: 048

REACTIONS (3)
  - Vomiting [Unknown]
  - Anaemia [Unknown]
  - Haematemesis [None]
